FAERS Safety Report 20054543 (Version 1)
Quarter: 2021Q4

REPORT INFORMATION
  Report Type: Spontaneous
  Country: US (occurrence: None)
  Receive Date: 20211110
  Receipt Date: 20211110
  Transmission Date: 20220303
  Serious: Yes (Disabling)
  Sender: FDA-Public Use
  Company Number: None

PATIENT
  Age: 42 Year
  Sex: Male
  Weight: 135.9 kg

DRUGS (15)
  1. CARBAMAZEPINE [Suspect]
     Active Substance: CARBAMAZEPINE
     Indication: Bipolar I disorder
     Dosage: FREQUENCY : TWICE A DAY;?
     Route: 048
  2. LITHIUM CARBONATE [Concomitant]
     Active Substance: LITHIUM CARBONATE
  3. VASCEPA [Concomitant]
     Active Substance: ICOSAPENT ETHYL
  4. SERTRALINE [Concomitant]
     Active Substance: SERTRALINE HYDROCHLORIDE
  5. CARBAMAZEPINE [Concomitant]
     Active Substance: CARBAMAZEPINE
  6. METFORMIN [Concomitant]
     Active Substance: METFORMIN HYDROCHLORIDE
  7. Ozpempic [Concomitant]
  8. GABAPENTIN [Concomitant]
     Active Substance: GABAPENTIN
  9. GABAPENTIN [Concomitant]
     Active Substance: GABAPENTIN
  10. PANTOPRAZOLE [Concomitant]
     Active Substance: PANTOPRAZOLE
  11. MAGNESIUM [Concomitant]
     Active Substance: MAGNESIUM
  12. LOSARTAN [Concomitant]
     Active Substance: LOSARTAN
  13. JARDIANCE [Concomitant]
     Active Substance: EMPAGLIFLOZIN
  14. ASPIRIN [Concomitant]
     Active Substance: ASPIRIN
  15. ROSUVASTATIN [Concomitant]
     Active Substance: ROSUVASTATIN

REACTIONS (21)
  - Drug reaction with eosinophilia and systemic symptoms [None]
  - Rash [None]
  - Liver injury [None]
  - Eosinophilia [None]
  - Yellow skin [None]
  - Ocular icterus [None]
  - Fatigue [None]
  - Malaise [None]
  - Nausea [None]
  - Vomiting [None]
  - Fatigue [None]
  - Dizziness [None]
  - Vision blurred [None]
  - Laboratory test abnormal [None]
  - Seasonal allergy [None]
  - Thyroid disorder [None]
  - Blood triglycerides increased [None]
  - Hepatic enzyme increased [None]
  - Peripheral arterial occlusive disease [None]
  - Nephropathy [None]
  - Hepatic fibrosis [None]

NARRATIVE: CASE EVENT DATE: 20180215
